FAERS Safety Report 23137243 (Version 1)
Quarter: 2023Q4

REPORT INFORMATION
  Report Type: Report from Study
  Country: ZA (occurrence: ZA)
  Receive Date: 20231102
  Receipt Date: 20231102
  Transmission Date: 20240110
  Serious: Yes (Other)
  Sender: FDA-Public Use
  Company Number: ZA-002147023-NVSC2022ZA121146

PATIENT
  Age: 19 Year
  Sex: Female

DRUGS (2)
  1. FINGOLIMOD HYDROCHLORIDE [Suspect]
     Active Substance: FINGOLIMOD HYDROCHLORIDE
     Indication: Multiple sclerosis
     Dosage: 0.5 MG, QD
     Route: 048
     Dates: start: 20220425
  2. FINGOLIMOD HYDROCHLORIDE [Suspect]
     Active Substance: FINGOLIMOD HYDROCHLORIDE
     Indication: Relapsing-remitting multiple sclerosis

REACTIONS (8)
  - Dysmetria [Unknown]
  - Menstrual disorder [Unknown]
  - Hormone level abnormal [Unknown]
  - Sensory loss [Unknown]
  - Intention tremor [Unknown]
  - Vibratory sense increased [Unknown]
  - Anaesthesia [Unknown]
  - Loss of proprioception [Unknown]

NARRATIVE: CASE EVENT DATE: 20220523
